FAERS Safety Report 22267984 (Version 2)
Quarter: 2023Q2

REPORT INFORMATION
  Report Type: Report from Study
  Country: MX (occurrence: MX)
  Receive Date: 20230430
  Receipt Date: 20230509
  Transmission Date: 20230721
  Serious: Yes (Hospitalization)
  Sender: FDA-Public Use
  Company Number: MX-002147023-NVSC2023MX097213

PATIENT
  Age: 82 Year
  Sex: Male
  Weight: 70 kg

DRUGS (3)
  1. ENTRESTO [Suspect]
     Active Substance: SACUBITRIL\VALSARTAN
     Indication: Cardiac failure
     Dosage: 1.5 DOSAGE FORM (100 MG), QD (1 IN THE MORNING AND ? AT NIGHT)
     Route: 048
     Dates: start: 20230201
  2. CILOSTAZOL [Concomitant]
     Active Substance: CILOSTAZOL
     Indication: Poor peripheral circulation
     Dosage: 0.5 DOSAGE FORM (50 MG), BID, IN THE MORNING AND IN THE AFTERNOON
     Route: 048
     Dates: start: 202103
  3. XIGDUO XR [Concomitant]
     Active Substance: DAPAGLIFLOZIN PROPANEDIOL\METFORMIN HYDROCHLORIDE
     Indication: Diabetes mellitus
     Dosage: 1 DOSAGE FORM, QD
     Route: 048
     Dates: start: 202110

REACTIONS (4)
  - Pharyngitis [Recovered/Resolved]
  - Vocal cord inflammation [Recovered/Resolved]
  - Aphonia [Recovered/Resolved]
  - Wrong technique in product usage process [Not Recovered/Not Resolved]

NARRATIVE: CASE EVENT DATE: 20230201
